FAERS Safety Report 12356421 (Version 2)
Quarter: 2017Q1

REPORT INFORMATION
  Report Type: Spontaneous
  Country: US (occurrence: US)
  Receive Date: 20160511
  Receipt Date: 20170202
  Transmission Date: 20170428
  Serious: Yes (Other)
  Sender: FDA-Public Use
  Company Number: US-ELI_LILLY_AND_COMPANY-US201605000593

PATIENT
  Age: 67 Year
  Sex: Female

DRUGS (2)
  1. CYMBALTA [Suspect]
     Active Substance: DULOXETINE HYDROCHLORIDE
     Indication: DEPRESSION
     Dosage: 60 MG, BID
     Route: 048
  2. CYMBALTA [Suspect]
     Active Substance: DULOXETINE HYDROCHLORIDE
     Indication: PAIN
     Dosage: UNK, UNKNOWN
     Route: 065

REACTIONS (12)
  - Suicidal ideation [Recovered/Resolved]
  - Mood swings [Unknown]
  - Agitation [Unknown]
  - Paraesthesia [Unknown]
  - Suicide attempt [Unknown]
  - Depression [Unknown]
  - Dizziness [Unknown]
  - Dysphoria [Unknown]
  - Stress [Unknown]
  - Irritability [Unknown]
  - Drug withdrawal syndrome [Unknown]
  - Intentional overdose [Unknown]

NARRATIVE: CASE EVENT DATE: 20140127
